FAERS Safety Report 13877307 (Version 1)
Quarter: 2017Q3

REPORT INFORMATION
  Report Type: Spontaneous
  Country: FR (occurrence: FR)
  Receive Date: 20170817
  Receipt Date: 20170817
  Transmission Date: 20171127
  Serious: Yes (Other)
  Sender: FDA-Public Use
  Company Number: FR-LPDUSPRD-20150122

PATIENT

DRUGS (1)
  1. FERINJECT [Suspect]
     Active Substance: FERRIC CARBOXYMALTOSE
     Dosage: DOSE NOT PROVIDED
     Route: 041
     Dates: start: 2014

REACTIONS (6)
  - Vitamin D deficiency [Unknown]
  - Hypophosphataemia [Recovered/Resolved with Sequelae]
  - Bone pain [Unknown]
  - Stress fracture [Recovered/Resolved with Sequelae]
  - Blood parathyroid hormone increased [Unknown]
  - Fracture [Unknown]
